FAERS Safety Report 6521677-0 (Version None)
Quarter: 2009Q4

REPORT INFORMATION
  Report Type: 
  Country: None (occurrence: None)
  Receive Date: 20091230
  Receipt Date: 20091222
  Transmission Date: 20100525
  Serious: Yes (Other)
  Sender: FDA-Public Use
  Company Number: PHHO2009DE00606

PATIENT
  Sex: Female

DRUGS (4)
  1. ZOLEDRONATE T29581+SOLINJ+BM [Suspect]
     Indication: BREAST CANCER
     Dosage: 4 MG, UNK
     Route: 042
     Dates: start: 20070117, end: 20081211
  2. CHEMOTHERAPEUTICS,OTHER [Concomitant]
  3. CALCIMAGON-D3 [Concomitant]
  4. TAMOXIFEN [Concomitant]

REACTIONS (1)
  - RESORPTION BONE INCREASED [None]
